FAERS Safety Report 8198182-1 (Version None)
Quarter: 2012Q1

REPORT INFORMATION
  Report Type: 
  Country: None (occurrence: None)
  Receive Date: 20120309
  Receipt Date: 20111215
  Transmission Date: 20120608
  Serious: No
  Sender: FDA-Public Use
  Company Number: US-AMGEN-USASP2011066928

PATIENT
  Age: 78 Year
  Sex: Female

DRUGS (7)
  1. PROLIA [Suspect]
     Indication: OSTEOPOROSIS POSTMENOPAUSAL
     Dosage: 60 MG, Q6MO
     Dates: start: 20111214, end: 20111214
  2. TOPROL-XL [Concomitant]
  3. NEXIUM [Concomitant]
  4. VITAMIN D [Concomitant]
  5. VITAMIN B12                        /00056201/ [Concomitant]
  6. CALCIUM + VIT D [Concomitant]
  7. MORPHINE [Concomitant]

REACTIONS (10)
  - PRURITUS [None]
  - UPPER-AIRWAY COUGH SYNDROME [None]
  - RASH [None]
  - NASAL CONGESTION [None]
  - HYPERSENSITIVITY [None]
  - EYE SWELLING [None]
  - LACRIMATION INCREASED [None]
  - CHEST DISCOMFORT [None]
  - DYSPNOEA [None]
  - OCULAR HYPERAEMIA [None]
